FAERS Safety Report 8366201-5 (Version None)
Quarter: 2012Q2

REPORT INFORMATION
  Report Type: 
  Country: None (occurrence: None)
  Receive Date: 20120517
  Receipt Date: 20120502
  Transmission Date: 20120825
  Serious: Yes (Hospitalization)
  Sender: FDA-Public Use
  Company Number: PHHY2012ES040882

PATIENT
  Age: 34 Year
  Sex: Female

DRUGS (3)
  1. IRON SUPPLEMENTS [Concomitant]
     Indication: DYSMENORRHOEA
  2. IMATINIB MESYLATE [Suspect]
     Indication: CHRONIC MYELOID LEUKAEMIA
     Dosage: 400 MG, DAILY
  3. ORAL CONTRACEPTIVE NOS [Interacting]
     Indication: DYSMENORRHOEA

REACTIONS (11)
  - HEPATIC ATROPHY [None]
  - ENCEPHALOPATHY [None]
  - ACUTE HEPATIC FAILURE [None]
  - NAUSEA [None]
  - HEPATIC NECROSIS [None]
  - DRUG INTERACTION [None]
  - HEPATITIS FULMINANT [None]
  - ASTHENIA [None]
  - ABNORMAL FAECES [None]
  - VOMITING [None]
  - URINE COLOUR ABNORMAL [None]
